FAERS Safety Report 6070907-0 (Version None)
Quarter: 2009Q1

REPORT INFORMATION
  Report Type: 
  Country: None (occurrence: None)
  Receive Date: 20090209
  Receipt Date: 20090130
  Transmission Date: 20090719
  Serious: Yes (Other)
  Sender: FDA-Public Use
  Company Number: JP-ABBOTT-09P-087-0498299-00

PATIENT
  Age: 82 Year
  Sex: Male

DRUGS (11)
  1. WARFARIN SODIUM [Suspect]
     Indication: EMBOLISM
     Route: 048
     Dates: start: 20070314, end: 20070706
  2. WARFARIN SODIUM [Suspect]
     Dates: start: 20070719, end: 20070723
  3. WARFARIN SODIUM [Suspect]
     Dates: start: 20070724, end: 20070729
  4. WARFARIN SODIUM [Suspect]
     Dates: start: 20070730, end: 20070730
  5. WARFARIN SODIUM [Suspect]
     Dates: start: 20070802
  6. OMEPRAZOLE [Interacting]
     Indication: DRUG USE FOR UNKNOWN INDICATION
     Dates: start: 20070709, end: 20070724
  7. MELOXICAM [Interacting]
     Indication: DRUG USE FOR UNKNOWN INDICATION
     Dates: start: 20070713, end: 20070731
  8. S-1 [Concomitant]
     Indication: DRUG USE FOR UNKNOWN INDICATION
     Dates: start: 20070521, end: 20070625
  9. GEMCITABINE [Concomitant]
     Indication: DRUG USE FOR UNKNOWN INDICATION
     Dosage: NOT REPORTED
     Route: 042
     Dates: start: 20070122, end: 20070625
  10. HEPARIN [Concomitant]
     Indication: PULMONARY EMBOLISM
     Route: 050
     Dates: start: 20070713, end: 20070726
  11. DIURETICS [Concomitant]
     Indication: DRUG USE FOR UNKNOWN INDICATION
     Dosage: INCREASED DOSAGE
     Dates: start: 20070627

REACTIONS (4)
  - COAGULOPATHY [None]
  - DRUG INTERACTION [None]
  - HAEMATURIA [None]
  - HAEMORRHAGE [None]
